FAERS Safety Report 25523651 (Version 1)
Quarter: 2025Q3

REPORT INFORMATION
  Report Type: Spontaneous
  Country: US (occurrence: US)
  Receive Date: 20250707
  Receipt Date: 20250707
  Transmission Date: 20251020
  Serious: Yes (Death, Hospitalization, Other)
  Sender: ZYDUS PHARM
  Company Number: US-CADILA HEALTHCARE LIMITED-US-ZYDUS-125532

PATIENT

DRUGS (4)
  1. ACETAMINOPHEN [Suspect]
     Active Substance: ACETAMINOPHEN
     Indication: Product used for unknown indication
     Route: 065
  2. ACETYLCYSTEINE [Suspect]
     Active Substance: ACETYLCYSTEINE
     Indication: Acute hepatic failure
     Route: 065
  3. MIDODRINE HYDROCHLORIDE [Suspect]
     Active Substance: MIDODRINE HYDROCHLORIDE
     Indication: Hypotension
     Route: 065
  4. NOREPINEPHRINE BITARTRATE [Suspect]
     Active Substance: NOREPINEPHRINE BITARTRATE
     Indication: Hypotension
     Route: 065

REACTIONS (7)
  - Renal failure [Unknown]
  - Metabolic encephalopathy [Unknown]
  - Upper gastrointestinal haemorrhage [Unknown]
  - Hepatic failure [Fatal]
  - Toxicity to various agents [Unknown]
  - Overdose [Unknown]
  - Drug ineffective [Unknown]
